FAERS Safety Report 5283074-8 (Version None)
Quarter: 2007Q2

REPORT INFORMATION
  Report Type: 
  Country: None (occurrence: None)
  Receive Date: 20070402
  Receipt Date: 20070319
  Transmission Date: 20071010
  Serious: Yes (Other)
  Sender: FDA-Public Use
  Company Number: GB-ELI_LILLY_AND_COMPANY-GB200703000103

PATIENT
  Age: 37 Year
  Sex: Female
  Weight: 126.8 kg

DRUGS (2)
  1. CYMBALTA [Suspect]
     Indication: ANXIETY
     Dosage: 60 MG, DAILY (1/D)
     Route: 048
     Dates: start: 20051018, end: 20070223
  2. VALPROATE SODIUM [Concomitant]
     Indication: CYCLOTHYMIC DISORDER
     Dosage: 600 MG, EACH EVENING
     Route: 048
     Dates: start: 20051018

REACTIONS (3)
  - LOSS OF CONSCIOUSNESS [None]
  - SYNCOPE [None]
  - SYNCOPE VASOVAGAL [None]
